FAERS Safety Report 7315071-2 (Version None)
Quarter: 2011Q1

REPORT INFORMATION
  Report Type: 
  Country: None (occurrence: None)
  Receive Date: 20110217
  Receipt Date: 20110217
  Transmission Date: 20110831
  Serious: No
  Sender: FDA-Public Use
  Company Number: None

PATIENT
  Sex: Female
  Weight: 57.1532 kg

DRUGS (1)
  1. PROPAFENONE 150 MG UNKNOWN [Suspect]
     Indication: ATRIAL FIBRILLATION
     Dosage: 150 MG 1/2 TAB Q 8 HRS PO
     Route: 048
     Dates: start: 20050815, end: 20050905

REACTIONS (3)
  - DISEASE RECURRENCE [None]
  - PRODUCT SUBSTITUTION ISSUE [None]
  - ATRIAL FIBRILLATION [None]
